FAERS Safety Report 21393247 (Version 2)
Quarter: 2022Q4

REPORT INFORMATION
  Report Type: Spontaneous
  Country: DE (occurrence: DE)
  Receive Date: 20220929
  Receipt Date: 20221011
  Transmission Date: 20230113
  Serious: Yes (Other)
  Sender: FDA-Public Use
  Company Number: DE-TORRENT-00023145

PATIENT
  Age: 29 Year
  Sex: Male

DRUGS (11)
  1. DICLOFENAC [Suspect]
     Active Substance: DICLOFENAC
     Indication: Bone pain
     Route: 065
  2. IBUPROFEN [Suspect]
     Active Substance: IBUPROFEN
     Indication: Bone pain
     Route: 065
  3. HYDROMORPHONE [Suspect]
     Active Substance: HYDROMORPHONE
     Indication: Pain
     Dosage: EVERY 24  HOURS, GALENIC
     Route: 065
  4. PREGABALIN [Suspect]
     Active Substance: PREGABALIN
     Indication: Bone pain
     Dosage: 150 MG IN THE MORNING AND IN THE EVENING
     Route: 065
  5. PREGABALIN [Suspect]
     Active Substance: PREGABALIN
     Dosage: 50-50-150 MG
     Route: 065
  6. OXYCODONE [Suspect]
     Active Substance: OXYCODONE
     Indication: Analgesic therapy
     Dosage: EXTENDED-RELEASE OXYCODONE, (30-30-40 MG)
     Route: 048
  7. AMBROXOL [Suspect]
     Active Substance: AMBROXOL
     Indication: Pain
     Dosage: 20% AMBROXOL WAS ALSO PRESCRIBED FOR LOCAL THERAPY ON THE SHOULDER
     Route: 065
  8. MORPHINE [Suspect]
     Active Substance: MORPHINE
     Indication: Pain
     Dosage: SIX AND EIGHT TIMES DAILY
     Route: 048
  9. AMITRIPTYLINE [Suspect]
     Active Substance: AMITRIPTYLINE
     Indication: Pain
     Dosage: 25 MG AMITRIPTYLINE AT NIGHT
     Route: 065
  10. ZOLEDRONIC ACID [Suspect]
     Active Substance: ZOLEDRONIC ACID
     Indication: Bone pain
     Dosage: I.V. EVERY FOUR WEEKS
     Route: 042
  11. VITAMIN D [Suspect]
     Active Substance: VITAMIN D NOS
     Indication: Pain
     Dosage: 2000 IU VITAMIN D PER DAY
     Route: 065

REACTIONS (1)
  - Therapy non-responder [Unknown]
